FAERS Safety Report 18756666 (Version 3)
Quarter: 2021Q3

REPORT INFORMATION
  Report Type: Report from Study
  Country: US (occurrence: US)
  Receive Date: 20210119
  Receipt Date: 20210730
  Transmission Date: 20211014
  Serious: Yes (Hospitalization, Other)
  Sender: FDA-Public Use
  Company Number: US-EXELIXIS-CABO-21036759

PATIENT
  Sex: Female
  Weight: 78.01 kg

DRUGS (4)
  1. PROBIOTICA [Concomitant]
     Active Substance: PROBIOTICS NOS
  2. CYCLOBENZAPRINE. [Concomitant]
     Active Substance: CYCLOBENZAPRINE
  3. CABOMETYX [Suspect]
     Active Substance: CABOZANTINIB S-MALATE
     Indication: RENAL CELL CARCINOMA
     Dosage: 60 MG, QD
     Route: 048
     Dates: start: 20201215, end: 20210107
  4. TYLENOL [Concomitant]
     Active Substance: ACETAMINOPHEN

REACTIONS (9)
  - Arthropathy [Unknown]
  - Muscular weakness [Unknown]
  - Nasal ulcer [Unknown]
  - Constipation [Unknown]
  - Diarrhoea [Unknown]
  - Inflammation [Unknown]
  - Pharyngeal ulceration [Unknown]
  - Dysphagia [Unknown]
  - Back pain [Unknown]
